FAERS Safety Report 9925878 (Version 2)
Quarter: 2014Q2

REPORT INFORMATION
  Report Type: Spontaneous
  Country: FR (occurrence: FR)
  Receive Date: 20140226
  Receipt Date: 20140516
  Transmission Date: 20141212
  Serious: Yes (Hospitalization)
  Sender: FDA-Public Use
  Company Number: FR-BAYER-2014-029562

PATIENT
  Age: 60 Year
  Sex: Female

DRUGS (10)
  1. ULTRAVIST [Suspect]
     Dosage: 1 DF, ONCE
     Route: 042
     Dates: start: 20131205, end: 20131205
  2. BRICANYL [Suspect]
     Indication: DYSPNOEA
     Dosage: 1 DF, TID
     Route: 045
     Dates: start: 20131205, end: 20131205
  3. SOLUPRED [PREDNISOLONE] [Suspect]
     Dosage: 30 MG, QD
     Route: 048
     Dates: start: 20131205, end: 20131209
  4. ATROVENT [Suspect]
     Indication: DYSPNOEA
     Dosage: 1 DF, TID
     Route: 045
     Dates: start: 20131205, end: 20131209
  5. PULMICORT [Suspect]
     Indication: DYSPNOEA
     Dosage: 1 DF, ONCE
     Route: 045
     Dates: start: 20131205, end: 20131205
  6. TANAKAN [Concomitant]
     Indication: HAEMORRHAGIC STROKE
     Dosage: 2 DF, QD
     Route: 048
     Dates: start: 201311, end: 20131209
  7. URBANYL [Concomitant]
  8. DEDROGYL [Concomitant]
  9. DIVARIUS [Concomitant]
  10. RHINOCORT [Concomitant]

REACTIONS (3)
  - Erythema [Not Recovered/Not Resolved]
  - Pruritus [Not Recovered/Not Resolved]
  - Purpura [Not Recovered/Not Resolved]
